FAERS Safety Report 12140793 (Version 1)
Quarter: 2016Q1

REPORT INFORMATION
  Report Type: Spontaneous
  Country: US (occurrence: US)
  Receive Date: 20160303
  Receipt Date: 20160303
  Transmission Date: 20160526
  Serious: Yes (Other)
  Sender: FDA-Public Use
  Company Number: US-JNJFOC-20160301822

PATIENT

DRUGS (1)
  1. INVOKANA [Suspect]
     Active Substance: CANAGLIFLOZIN
     Indication: TYPE 2 DIABETES MELLITUS
     Route: 065

REACTIONS (8)
  - Nephrolithiasis [Unknown]
  - Weight decreased [Unknown]
  - Urinary tract infection [Unknown]
  - Renal failure [Unknown]
  - Hypersensitivity [Unknown]
  - Renal impairment [Unknown]
  - Diabetic ketoacidosis [Unknown]
  - Electrolyte imbalance [Unknown]
